FAERS Safety Report 9693865 (Version 1)
Quarter: 2013Q4

REPORT INFORMATION
  Report Type: Spontaneous
  Country: IN (occurrence: None)
  Receive Date: 20131114
  Receipt Date: 20131114
  Transmission Date: 20140711
  Serious: Yes (Other)
  Sender: FDA-Public Use
  Company Number: INT_00329_2013

PATIENT
  Age: 37 Year
  Sex: Male

DRUGS (3)
  1. IMIPENEM CILASTATIN [Suspect]
     Indication: PNEUMONIA
     Dosage: (UNKNOWN DF)
  2. SOLUTIONS FOR PARENTERAL NUTRITION (UNKNOWN) [Concomitant]
  3. MULTIVITAMIN ANC MINERAL SUPPLEMENT (UNKNOWN) [Concomitant]

REACTIONS (1)
  - Metabolic alkalosis [None]
